FAERS Safety Report 20930134 (Version 2)
Quarter: 2022Q3

REPORT INFORMATION
  Report Type: Spontaneous
  Country: US (occurrence: None)
  Receive Date: 20220608
  Receipt Date: 20220711
  Transmission Date: 20221027
  Serious: No
  Sender: FDA-Public Use
  Company Number: 2022A197715

PATIENT
  Sex: Female

DRUGS (1)
  1. BUDESONIDE\FORMOTEROL\GLYCOPYRRONIUM [Suspect]
     Active Substance: BUDESONIDE\FORMOTEROL\GLYCOPYRRONIUM
     Indication: Chronic obstructive pulmonary disease
     Dosage: 160MCG-9MCG-4.8MCG 2 PUFFS TWICE A DAY
     Route: 055
     Dates: start: 20220517

REACTIONS (6)
  - Cough [Unknown]
  - Intentional device misuse [Unknown]
  - Drug ineffective [Unknown]
  - Device malfunction [Unknown]
  - Device malfunction [Unknown]
  - Wrong technique in device usage process [Unknown]
